FAERS Safety Report 26048868 (Version 1)
Quarter: 2025Q4

REPORT INFORMATION
  Report Type: Spontaneous
  Country: US (occurrence: US)
  Receive Date: 20251115
  Receipt Date: 20251115
  Transmission Date: 20260117
  Serious: No
  Sender: ACCORD
  Company Number: US-Coherus Biosciences INC-2024-COH-US000781

PATIENT

DRUGS (1)
  1. UDENYCA [Suspect]
     Active Substance: PEGFILGRASTIM-CBQV
     Indication: Product used for unknown indication
     Dosage: 6 MG/0.6 ML
     Route: 058
     Dates: start: 20240802

REACTIONS (4)
  - Device malfunction [Unknown]
  - No adverse event [Unknown]
  - Device malfunction [Unknown]
  - No adverse event [Unknown]

NARRATIVE: CASE EVENT DATE: 20240803
